FAERS Safety Report 15823656 (Version 2)
Quarter: 2019Q1

REPORT INFORMATION
  Report Type: Report from Study
  Country: US (occurrence: US)
  Receive Date: 20190114
  Receipt Date: 20190318
  Transmission Date: 20190417
  Serious: Yes (Death)
  Sender: FDA-Public Use
  Company Number: US-ACTELION-A-US2019-184580

PATIENT
  Age: 71 Year
  Sex: Male

DRUGS (1)
  1. OPSUMIT [Suspect]
     Active Substance: MACITENTAN
     Indication: PULMONARY ARTERIAL HYPERTENSION
     Dosage: UNK
     Route: 048
     Dates: start: 201812, end: 20190102

REACTIONS (5)
  - Atrial fibrillation [Unknown]
  - Death [Fatal]
  - Pleural effusion [Recovered/Resolved]
  - Cardiac ablation [Recovered/Resolved]
  - Atrial flutter [Unknown]

NARRATIVE: CASE EVENT DATE: 20190102
